FAERS Safety Report 12187442 (Version 2)
Quarter: 2016Q2

REPORT INFORMATION
  Report Type: Report from Study
  Country: US (occurrence: US)
  Receive Date: 20160317
  Receipt Date: 20160419
  Transmission Date: 20160815
  Serious: Yes (Hospitalization)
  Sender: FDA-Public Use
  Company Number: US-GILEAD-2016-0203953

PATIENT
  Age: 58 Year
  Sex: Female

DRUGS (15)
  1. VENTAVIS [Concomitant]
     Active Substance: ILOPROST
  2. HEPARIN [Concomitant]
     Active Substance: HEPARIN SODIUM
  3. AMBRISENTAN [Suspect]
     Active Substance: AMBRISENTAN
     Indication: PULMONARY HYPERTENSION
     Dosage: 5 MG, QD
     Route: 065
     Dates: start: 20150409
  4. URSODIOL. [Concomitant]
     Active Substance: URSODIOL
  5. METOPROLOL. [Concomitant]
     Active Substance: METOPROLOL
  6. ASPIRIN                            /00002701/ [Concomitant]
     Active Substance: ASPIRIN
  7. TAMIFLU [Concomitant]
     Active Substance: OSELTAMIVIR PHOSPHATE
  8. TACROLIMUS. [Concomitant]
     Active Substance: TACROLIMUS
  9. LOSARTAN. [Concomitant]
     Active Substance: LOSARTAN
  10. PROTONIX                           /00661201/ [Concomitant]
     Active Substance: OMEPRAZOLE
  11. PRAVASTATIN [Concomitant]
     Active Substance: PRAVASTATIN\PRAVASTATIN SODIUM
  12. INSULIN [Concomitant]
     Active Substance: INSULIN NOS
  13. ADCIRCA [Concomitant]
     Active Substance: TADALAFIL
  14. MYCOPHENOLATE [Concomitant]
     Active Substance: MYCOPHENOLIC ACID
  15. MULTIVITAMINS [Concomitant]
     Active Substance: VITAMINS

REACTIONS (1)
  - Influenza [Recovered/Resolved]

NARRATIVE: CASE EVENT DATE: 20160308
